FAERS Safety Report 7605037-7 (Version None)
Quarter: 2011Q3

REPORT INFORMATION
  Report Type: 
  Country: None (occurrence: None)
  Receive Date: 20110713
  Receipt Date: 20090909
  Transmission Date: 20111222
  Serious: No
  Sender: FDA-Public Use
  Company Number: 2009BI029225

PATIENT
  Age: 42 Year
  Sex: Female

DRUGS (1)
  1. TYSABRI [Suspect]
     Indication: MULTIPLE SCLEROSIS
     Route: 042
     Dates: start: 20080623

REACTIONS (8)
  - DEPRESSION [None]
  - BACK PAIN [None]
  - HYPOTONIA [None]
  - INTERVERTEBRAL DISC DISORDER [None]
  - GAIT DISTURBANCE [None]
  - SPINAL COLUMN STENOSIS [None]
  - INTERVERTEBRAL DISC DEGENERATION [None]
  - MULTIPLE SCLEROSIS [None]
